FAERS Safety Report 5225887-4 (Version None)
Quarter: 2007Q1

REPORT INFORMATION
  Report Type: 
  Country: None (occurrence: None)
  Receive Date: 20070130
  Receipt Date: 20070130
  Transmission Date: 20070707
  Serious: Yes (Hospitalization)
  Sender: FDA-Public Use
  Company Number: None

PATIENT
  Age: 78 Year
  Sex: Female
  Weight: 51 kg

DRUGS (15)
  1. NAMENDA [Suspect]
     Indication: DEMENTIA
     Dates: start: 20060113, end: 20060124
  2. METFORMIN HCL [Concomitant]
  3. METOPROLOL SUCCINATE [Concomitant]
  4. POTASSIUM CHLORIDE [Concomitant]
  5. QUININE [Concomitant]
  6. VYTORIN [Concomitant]
  7. DONEPEZIL HCL [Concomitant]
  8. ALENDRONATE SODIUM [Concomitant]
  9. ALPRAZOLAM [Concomitant]
  10. OS-CAL [Concomitant]
  11. Q-GEL [Concomitant]
  12. ESCITALOPRAM OXALATE [Concomitant]
  13. FISH OIL [Concomitant]
  14. SYNTHROID [Concomitant]
  15. PRIMIDONE [Concomitant]

REACTIONS (3)
  - AGITATION [None]
  - HALLUCINATION [None]
  - PARADOXICAL DRUG REACTION [None]
